FAERS Safety Report 9618381 (Version 2)
Quarter: 2014Q3

REPORT INFORMATION
  Report Type: Spontaneous
  Country: DE (occurrence: DE)
  Receive Date: 20131014
  Receipt Date: 20140812
  Transmission Date: 20150326
  Serious: Yes (Other)
  Sender: FDA-Public Use
  Company Number: DE-009507513-1310DEU003961

PATIENT
  Age: 70 Year
  Sex: Male

DRUGS (6)
  1. DUOTRAV [Suspect]
     Active Substance: TIMOLOL\TRAVOPROST
     Dosage: UNK
     Dates: start: 201010
  2. AZOPT [Suspect]
     Active Substance: BRINZOLAMIDE
     Dosage: UNK
     Dates: end: 200903
  3. XALATAN [Suspect]
     Active Substance: LATANOPROST
     Dosage: UNK
     Dates: end: 200903
  4. GANFORT [Suspect]
     Active Substance: BIMATOPROST\TIMOLOL
     Dosage: UNK
     Dates: end: 200903
  5. TAFLOTAN [Suspect]
     Active Substance: TAFLUPROST
     Indication: GLAUCOMA
     Dosage: STRENGTH: 15 MICROGRAM/ML
     Route: 047
     Dates: start: 200903, end: 201010
  6. COSOPT [Suspect]
     Active Substance: DORZOLAMIDE HYDROCHLORIDE\TIMOLOL MALEATE
     Dosage: UNK
     Dates: end: 200903

REACTIONS (2)
  - Prostate cancer [Unknown]
  - Free prostate-specific antigen increased [Unknown]

NARRATIVE: CASE EVENT DATE: 200410
